FAERS Safety Report 7549684-X (Version None)
Quarter: 2011Q2

REPORT INFORMATION
  Report Type: 
  Country: None (occurrence: None)
  Receive Date: 20110615
  Receipt Date: 20110610
  Transmission Date: 20111010
  Serious: Yes (Death, Life-Threatening)
  Sender: FDA-Public Use
  Company Number: JP-SANOFI-AVENTIS-F01200800073

PATIENT
  Age: 85 Year
  Sex: Female

DRUGS (3)
  1. CLOPIDOGREL BISULFATE [Suspect]
     Indication: CEREBROVASCULAR DISORDER
     Route: 065
     Dates: start: 20061217, end: 20070305
  2. ALFACALCIDOL [Concomitant]
     Route: 048
     Dates: end: 20070305
  3. OMEPRAZOLE [Concomitant]
     Route: 048
     Dates: start: 20060422, end: 20070305

REACTIONS (1)
  - PNEUMONIA [None]
